FAERS Safety Report 25165924 (Version 2)
Quarter: 2025Q2

REPORT INFORMATION
  Report Type: Spontaneous
  Country: PL (occurrence: PL)
  Receive Date: 20250407
  Receipt Date: 20250417
  Transmission Date: 20250716
  Serious: Yes (Other)
  Sender: ABBVIE
  Company Number: PL-RICHTER-2025-GR-003214

PATIENT
  Age: 34 Year
  Sex: Female

DRUGS (2)
  1. LEVONORGESTREL [Suspect]
     Active Substance: LEVONORGESTREL
     Indication: Contraception
     Route: 015
     Dates: start: 202412, end: 202501
  2. LEVONORGESTREL [Suspect]
     Active Substance: LEVONORGESTREL
     Route: 015
     Dates: start: 20250117, end: 20250217

REACTIONS (6)
  - Pregnancy with contraceptive device [Unknown]
  - Device expulsion [Recovered/Resolved]
  - Drug ineffective [Unknown]
  - Application site discomfort [Recovered/Resolved]
  - Hypomenorrhoea [Unknown]
  - Maternal exposure during pregnancy [Unknown]

NARRATIVE: CASE EVENT DATE: 20250101
